FAERS Safety Report 11201536 (Version 2)
Quarter: 2015Q3

REPORT INFORMATION
  Report Type: Report from Study
  Country: US (occurrence: None)
  Receive Date: 20150617
  Receipt Date: 20150728
  Transmission Date: 20151125
  Serious: Yes (Death, Hospitalization)
  Sender: FDA-Public Use
  Company Number: 2015AP009757

PATIENT
  Age: 14 Year
  Sex: Female
  Weight: 44 kg

DRUGS (7)
  1. ZOFRAN [Concomitant]
     Active Substance: ONDANSETRON HYDROCHLORIDE
  2. OXYCODONE [Concomitant]
     Active Substance: OXYCODONE
  3. FERRIPROX [Suspect]
     Active Substance: DEFERIPRONE
     Indication: APLASTIC ANAEMIA
     Route: 048
     Dates: start: 20140508, end: 20150530
  4. PENICILLIN V-K (PHENOXYMETHYLPENICILLIN POTASSIUM) [Concomitant]
  5. FERRIPROX [Suspect]
     Active Substance: DEFERIPRONE
     Indication: HAEMOCHROMATOSIS
     Route: 048
     Dates: start: 20140508, end: 20150530
  6. MIRALAX [Concomitant]
     Active Substance: POLYETHYLENE GLYCOL 3350
  7. VORICONAZOLE. [Concomitant]
     Active Substance: VORICONAZOLE

REACTIONS (5)
  - Stenotrophomonas infection [None]
  - Device related infection [None]
  - Dyspnoea [None]
  - Pulmonary haemorrhage [None]
  - Multi-organ failure [None]
